FAERS Safety Report 7880010-2 (Version None)
Quarter: 2011Q4

REPORT INFORMATION
  Report Type: 
  Country: None (occurrence: None)
  Receive Date: 20111101
  Receipt Date: 20111025
  Transmission Date: 20120403
  Serious: Yes (Hospitalization)
  Sender: FDA-Public Use
  Company Number: BR-ROCHE-761214

PATIENT
  Sex: Female
  Weight: 69 kg

DRUGS (18)
  1. GLUCOREUMIN [Concomitant]
  2. ALENDRONATE SODIUM [Concomitant]
     Dosage: DRUG: ALENDIL CALCIO
  3. GALVUS [Concomitant]
  4. METHOTREXATE [Concomitant]
     Dosage: DOSE: 8 (UNSPECIFIED UNIT/WEEK)
  5. ASCORBIC ACID [Concomitant]
  6. PRELONE [Concomitant]
     Indication: PAIN
  7. CALCIUM [Concomitant]
  8. SIMVASTATIN [Concomitant]
     Indication: PROPHYLAXIS
     Dosage: INDICATION: AS PRECAUTION FOR BLOOD CHOLESTEROL
  9. ACTEMRA [Suspect]
     Indication: RHEUMATOID ARTHRITIS
     Dosage: 16 INFUSION RECEIVED TILL 21 FEB 2011
     Route: 042
  10. METFORMIN HYDROCHLORIDE [Concomitant]
     Dosage: DRUG: GLIFAGE XR
  11. ENDOFOLIN [Concomitant]
  12. METHOTREXATE [Concomitant]
  13. ARCOXIA [Concomitant]
  14. LOSARTAN POTASSIUM [Concomitant]
  15. GALVUS [Concomitant]
     Indication: DIABETES MELLITUS
  16. LEVOTHYROXINE SODIUM [Concomitant]
  17. PANTOPRAZOLE [Concomitant]
     Indication: GASTRIC DISORDER
  18. ALENDRONATE SODIUM [Concomitant]
     Dosage: DRUG: ALENDIL CALCIO D

REACTIONS (4)
  - WEIGHT INCREASED [None]
  - DRUG INEFFECTIVE [None]
  - ARTHROPATHY [None]
  - RHEUMATOID ARTHRITIS [None]
